FAERS Safety Report 8336272-0 (Version None)
Quarter: 2012Q2

REPORT INFORMATION
  Report Type: 
  Country: None (occurrence: None)
  Receive Date: 20120504
  Receipt Date: 20120423
  Transmission Date: 20120825
  Serious: Yes (Other)
  Sender: FDA-Public Use
  Company Number: PHHY2011KR111272

PATIENT
  Sex: Male
  Weight: 28 kg

DRUGS (2)
  1. EXJADE [Suspect]
     Indication: IRON OVERLOAD
     Dosage: UNK UKN, UNK
     Route: 048
     Dates: start: 20080221
  2. EXJADE [Suspect]
     Indication: APLASTIC ANAEMIA

REACTIONS (4)
  - ACUTE GRAFT VERSUS HOST DISEASE [None]
  - SERUM FERRITIN INCREASED [None]
  - MUSCULOSKELETAL STIFFNESS [None]
  - MUSCLE SPASTICITY [None]
